FAERS Safety Report 5301129-6 (Version None)
Quarter: 2007Q1

REPORT INFORMATION
  Report Type: 
  Country: None (occurrence: None)
  Receive Date: 20070201
  Receipt Date: 20061220
  Transmission Date: 20070707
  Serious: No
  Sender: FDA-Public Use
  Company Number: 2006PV027230

PATIENT
  Age: 71 Year
  Sex: Male
  Weight: 131.5431 kg

DRUGS (6)
  1. BYETTA [Suspect]
     Indication: DIABETES MELLITUS NON-INSULIN-DEPENDENT
     Dosage: 5 MCG;QD;SC
     Route: 058
     Dates: start: 20061219
  2. ACTOS [Concomitant]
  3. GLIPIZIDE [Concomitant]
  4. VYTORIN [Concomitant]
  5. BCG [Concomitant]
  6. INTERFERON [Concomitant]

REACTIONS (5)
  - CHILLS [None]
  - DYSURIA [None]
  - FEELING ABNORMAL [None]
  - INFLUENZA LIKE ILLNESS [None]
  - PAIN [None]
